FAERS Safety Report 8384336-8 (Version None)
Quarter: 2012Q2

REPORT INFORMATION
  Report Type: 
  Country: None (occurrence: None)
  Receive Date: 20120524
  Receipt Date: 20120514
  Transmission Date: 20120825
  Serious: Yes (Hospitalization)
  Sender: FDA-Public Use
  Company Number: FI-ELI_LILLY_AND_COMPANY-FI201205005036

PATIENT
  Sex: Female

DRUGS (13)
  1. DUREKAL [Concomitant]
     Indication: PROPHYLAXIS
  2. EPOGEN [Concomitant]
  3. DOXIMED [Concomitant]
  4. BISOPROLOL FUMARATE [Concomitant]
     Indication: BLOOD PRESSURE
  5. MOVICOL                            /01625101/ [Concomitant]
     Indication: CONSTIPATION
  6. CORTISONE ACETATE [Concomitant]
  7. RAMIPRIL [Concomitant]
     Indication: RENAL DISORDER
  8. BUPRENORPHINE [Concomitant]
     Indication: PAIN
  9. CALCIUM CARBONATE [Concomitant]
     Indication: MEDICAL DIET
  10. ROXIBION [Concomitant]
     Dosage: UNK, OTHER
  11. WARFARIN SODIUM [Concomitant]
     Indication: THROMBOSIS PROPHYLAXIS
  12. FORTEO [Suspect]
     Indication: OSTEOPOROSIS
     Dosage: 20 UG, QD
     Route: 058
     Dates: start: 20100524
  13. ZOLT [Concomitant]
     Indication: GASTROINTESTINAL DISORDER THERAPY

REACTIONS (2)
  - VARICOSE ULCERATION [None]
  - FATIGUE [None]
